FAERS Safety Report 24347219 (Version 2)
Quarter: 2024Q4

REPORT INFORMATION
  Report Type: Spontaneous
  Country: JP (occurrence: JP)
  Receive Date: 20240921
  Receipt Date: 20241008
  Transmission Date: 20250115
  Serious: Yes (Hospitalization)
  Sender: ARDELYX
  Company Number: JP-ARDELYX-2024ARDX007053

PATIENT
  Sex: Male

DRUGS (1)
  1. TENAPANOR HYDROCHLORIDE [Suspect]
     Active Substance: TENAPANOR HYDROCHLORIDE
     Indication: Hyperphosphataemia
     Dosage: 5 MILLIGRAM, BID, IMMEDIATELY BEFORE BREAKFAST AND DINNER
     Route: 048
     Dates: start: 20240411

REACTIONS (1)
  - Nasopharyngitis [Unknown]

NARRATIVE: CASE EVENT DATE: 20240901
